FAERS Safety Report 14519364 (Version 2)
Quarter: 2018Q2

REPORT INFORMATION
  Report Type: Spontaneous
  Country: US (occurrence: US)
  Receive Date: 20180212
  Receipt Date: 20180614
  Transmission Date: 20180711
  Serious: Yes (Other)
  Sender: FDA-Public Use
  Company Number: US-BAYER-2018-027626

PATIENT
  Age: 36 Year
  Sex: Female

DRUGS (4)
  1. KYLEENA [Suspect]
     Active Substance: LEVONORGESTREL
     Indication: CONTRACEPTION
     Dosage: 17.5 MCG/24HR, CONT
     Route: 015
     Dates: start: 20170912, end: 20171113
  2. ESOMEPRAZOLE [Concomitant]
     Active Substance: ESOMEPRAZOLE
     Dosage: 40 MG, UNK
  3. EFFEXOR XR [Concomitant]
     Active Substance: VENLAFAXINE HYDROCHLORIDE
     Dosage: 150 MG, UNK
     Route: 048
  4. KYLEENA [Suspect]
     Active Substance: LEVONORGESTREL
     Indication: CONTRACEPTION
     Dosage: 17 MCG/24HR, CONT
     Route: 015
     Dates: start: 20171113

REACTIONS (7)
  - Genital haemorrhage [None]
  - Uterine leiomyoma [None]
  - Procedural pain [None]
  - Device dislocation [None]
  - Procedural pain [None]
  - Polycystic ovaries [None]
  - Device expulsion [None]

NARRATIVE: CASE EVENT DATE: 20170912
